FAERS Safety Report 10435645 (Version 1)
Quarter: 2014Q3

REPORT INFORMATION
  Report Type: Spontaneous
  Country: US (occurrence: None)
  Receive Date: 20140904
  Receipt Date: 20140904
  Transmission Date: 20150326
  Serious: Yes (Hospitalization)
  Sender: FDA-Public Use
  Company Number: None

PATIENT
  Age: 24 Year
  Sex: Male
  Weight: 85.7 kg

DRUGS (6)
  1. QUETIAPINE 100MG LUPIN [Suspect]
     Active Substance: QUETIAPINE
     Indication: PSYCHOTIC DISORDER
     Dosage: 1 PILL QHS/BEDTIME, ORAL
     Route: 048
  2. ATENOLOL. [Concomitant]
     Active Substance: ATENOLOL
  3. CLONAZEPAM. [Concomitant]
     Active Substance: CLONAZEPAM
  4. LEVALBUTEROL NEBULIZATION [Concomitant]
  5. QUETIAPINE 100MG LUPIN [Suspect]
     Active Substance: QUETIAPINE
     Indication: DEPRESSION
     Dosage: 1 PILL QHS/BEDTIME, ORAL
     Route: 048
  6. LISINOPRIL. [Concomitant]
     Active Substance: LISINOPRIL

REACTIONS (7)
  - Depression [None]
  - Rash [None]
  - Abdominal pain [None]
  - Jaundice [None]
  - Chromaturia [None]
  - Psychotic disorder [None]
  - Hepatic enzyme increased [None]

NARRATIVE: CASE EVENT DATE: 20140831
